FAERS Safety Report 11687956 (Version 1)
Quarter: 2015Q4

REPORT INFORMATION
  Report Type: Other
  Country: US (occurrence: NL)
  Receive Date: 20151030
  Receipt Date: 20151030
  Transmission Date: 20160304
  Serious: Yes (Other)
  Sender: FDA-Public Use
  Company Number: US-NSR_02261_2015

PATIENT
  Age: 24 Month
  Sex: Female

DRUGS (2)
  1. ATENOLOL. [Suspect]
     Active Substance: ATENOLOL
     Indication: INFANTILE HAEMANGIOMA
     Dosage: 0.5 MG/KG/D (DAILY), AFTER 1 WEEK INCREASED TO 1 MG/KG/D THEN ADJUSTED BY WEIGHT (MAX 3 MG/KG/D)
  2. ATENOLOL. [Suspect]
     Active Substance: ATENOLOL
     Dosage: DF

REACTIONS (3)
  - Syncope [Recovered/Resolved]
  - Off label use [Not Recovered/Not Resolved]
  - Loss of consciousness [Recovered/Resolved]
